FAERS Safety Report 12183030 (Version 1)
Quarter: 2016Q1

REPORT INFORMATION
  Report Type: Spontaneous
  Country: FR (occurrence: FR)
  Receive Date: 20160316
  Receipt Date: 20160316
  Transmission Date: 20160526
  Serious: Yes (Other)
  Sender: FDA-Public Use
  Company Number: FR-ASTRAZENECA-2016SE27760

PATIENT
  Age: 3926 Week
  Sex: Female

DRUGS (7)
  1. INEGY [Concomitant]
     Active Substance: EZETIMIBE\SIMVASTATIN
  2. GALVUS [Concomitant]
     Active Substance: VILDAGLIPTIN
  3. METFORMINE [Concomitant]
     Active Substance: METFORMIN HYDROCHLORIDE
  4. DIAMICRON [Concomitant]
     Active Substance: GLICLAZIDE
  5. KARDEGIC [Concomitant]
     Active Substance: ASPIRIN LYSINE
  6. BRILIQUE [Suspect]
     Active Substance: TICAGRELOR
     Dosage: LOADING DOSE OF 2 DF OF BRILIQUE
     Route: 048
  7. BRILIQUE [Suspect]
     Active Substance: TICAGRELOR
     Route: 048
     Dates: start: 20160224, end: 20160229

REACTIONS (1)
  - Electrocardiogram QT prolonged [Unknown]

NARRATIVE: CASE EVENT DATE: 20160225
